FAERS Safety Report 9235820 (Version 1)
Quarter: 2013Q2

REPORT INFORMATION
  Report Type: Spontaneous
  Country: US (occurrence: None)
  Receive Date: 20130416
  Receipt Date: 20130416
  Transmission Date: 20140414
  Serious: No
  Sender: FDA-Public Use
  Company Number: None

PATIENT
  Sex: Female
  Weight: 102.06 kg

DRUGS (1)
  1. AMITIZA 24 MCG TAKEDA [Suspect]
     Indication: CONSTIPATION
     Dosage: 24 MCG, 2 PER DAY PO
     Route: 048
     Dates: start: 20080101, end: 20130415

REACTIONS (4)
  - Palpitations [None]
  - Product quality issue [None]
  - Capsule physical issue [None]
  - Drug ineffective [None]
